FAERS Safety Report 11021756 (Version 2)
Quarter: 2015Q2

REPORT INFORMATION
  Report Type: Report from Study
  Country: CA (occurrence: CA)
  Receive Date: 20150413
  Receipt Date: 20150420
  Transmission Date: 20150821
  Serious: Yes (Hospitalization)
  Sender: FDA-Public Use
  Company Number: CA-ABBVIE-15K-028-1372688-00

PATIENT
  Sex: Female
  Weight: 63.56 kg

DRUGS (1)
  1. HUMIRA [Suspect]
     Active Substance: ADALIMUMAB
     Indication: CROHN^S DISEASE
     Route: 058
     Dates: start: 20080723

REACTIONS (8)
  - Abscess [Not Recovered/Not Resolved]
  - Gastrointestinal pain [Not Recovered/Not Resolved]
  - Arthritis [Not Recovered/Not Resolved]
  - Infection [Not Recovered/Not Resolved]
  - Localised intraabdominal fluid collection [Not Recovered/Not Resolved]
  - Bladder disorder [Not Recovered/Not Resolved]
  - Abdominal adhesions [Not Recovered/Not Resolved]
  - Incision site abscess [Not Recovered/Not Resolved]
